FAERS Safety Report 5681123-6 (Version None)
Quarter: 2008Q1

REPORT INFORMATION
  Report Type: 
  Country: None (occurrence: None)
  Receive Date: 20080325
  Receipt Date: 20080319
  Transmission Date: 20080703
  Serious: No
  Sender: FDA-Public Use
  Company Number: 18759

PATIENT
  Age: 61 Year
  Sex: Female
  Weight: 66.9 kg

DRUGS (4)
  1. CARBOPLATIN [Suspect]
     Indication: OVARIAN CANCER
     Dosage: 556 MG IV
     Route: 042
     Dates: start: 20080306
  2. BENADRYL [Concomitant]
  3. ZOFRAN [Concomitant]
  4. DECADRON [Concomitant]

REACTIONS (7)
  - DYSPNOEA [None]
  - HYPERSENSITIVITY [None]
  - NAUSEA [None]
  - PRURITUS [None]
  - RASH [None]
  - TACHYCARDIA [None]
  - VOMITING [None]
